FAERS Safety Report 4646595-4 (Version None)
Quarter: 2005Q2

REPORT INFORMATION
  Report Type: 
  Country: None (occurrence: None)
  Receive Date: 20050427
  Receipt Date: 20050120
  Transmission Date: 20051028
  Serious: No
  Sender: FDA-Public Use
  Company Number: US-GLAXOSMITHKLINE-A0541519A

PATIENT
  Age: 5 Year
  Sex: Female

DRUGS (2)
  1. FLOVENT [Suspect]
     Indication: ASTHMA
     Dosage: 2PUFF PER DAY
     Route: 055
     Dates: start: 20040218
  2. ALBUTEROL [Concomitant]

REACTIONS (1)
  - DENTAL CARIES [None]
